FAERS Safety Report 26175508 (Version 1)
Quarter: 2025Q4

REPORT INFORMATION
  Report Type: Spontaneous
  Country: EU (occurrence: EU)
  Receive Date: 20251218
  Receipt Date: 20251218
  Transmission Date: 20260118
  Serious: Yes (Other)
  Sender: INTERCHEM
  Company Number: EU-HQ SPECIALTY-FR-2025INT000091

PATIENT

DRUGS (1)
  1. DEXMEDETOMIDINE HYDROCHLORIDE [Suspect]
     Active Substance: DEXMEDETOMIDINE HYDROCHLORIDE
     Indication: Product used for unknown indication
     Dosage: 1 DOSAGE FORM, 2 TOTAL ADMINISTRATION
     Route: 042
     Dates: start: 20251014, end: 20251015

REACTIONS (4)
  - Bradycardia [Recovered/Resolved]
  - Product confusion [Recovered/Resolved]
  - Product administered to patient of inappropriate age [Unknown]
  - Wrong product administered [Unknown]

NARRATIVE: CASE EVENT DATE: 20251014
